FAERS Safety Report 18373798 (Version 1)
Quarter: 2020Q4

REPORT INFORMATION
  Report Type: Report from Study
  Country: JP (occurrence: JP)
  Receive Date: 20201012
  Receipt Date: 20201012
  Transmission Date: 20210114
  Serious: Yes (Hospitalization)
  Sender: FDA-Public Use
  Company Number: JP-JNJFOC-20201007199

PATIENT
  Age: 50 Year
  Sex: Male
  Weight: 79.8 kg

DRUGS (6)
  1. STELARA [Suspect]
     Active Substance: USTEKINUMAB
     Dosage: 45 MG
     Route: 058
     Dates: start: 20180813, end: 20180813
  2. STELARA [Suspect]
     Active Substance: USTEKINUMAB
     Indication: CROHN^S DISEASE
     Dosage: 130 MG
     Route: 041
     Dates: start: 20180618, end: 20180618
  3. STELARA [Suspect]
     Active Substance: USTEKINUMAB
     Dosage: 45 MG
     Route: 058
     Dates: start: 20181217, end: 20181217
  4. STELARA [Suspect]
     Active Substance: USTEKINUMAB
     Dosage: 45 MG
     Route: 058
     Dates: start: 20181022, end: 20181022
  5. MESALAZINE [Concomitant]
     Active Substance: MESALAMINE
     Indication: CROHN^S DISEASE
     Route: 048
     Dates: start: 20180618
  6. ZENTACORT [Concomitant]
     Active Substance: BUDESONIDE
     Indication: CROHN^S DISEASE
     Route: 048
     Dates: start: 20180605

REACTIONS (1)
  - Dural arteriovenous fistula [Recovering/Resolving]

NARRATIVE: CASE EVENT DATE: 201902
